FAERS Safety Report 6703412-6 (Version None)
Quarter: 2010Q2

REPORT INFORMATION
  Report Type: 
  Country: None (occurrence: None)
  Receive Date: 20100428
  Receipt Date: 20100420
  Transmission Date: 20101027
  Serious: Yes (Hospitalization)
  Sender: FDA-Public Use
  Company Number: WAES 0907FRA00105

PATIENT
  Age: 51 Year
  Sex: Male

DRUGS (16)
  1. ZOLINZA [Suspect]
     Indication: LUNG NEOPLASM MALIGNANT
     Dosage: 400 MG/DAILY;PO, 400 MG/DAILY;PO, 400 MG/DAILY;PO
     Route: 048
     Dates: start: 20090629, end: 20090708
  2. ZOLINZA [Suspect]
     Indication: LUNG NEOPLASM MALIGNANT
     Dosage: 400 MG/DAILY;PO, 400 MG/DAILY;PO, 400 MG/DAILY;PO
     Route: 048
     Dates: start: 20090720, end: 20090726
  3. ZOLINZA [Suspect]
     Indication: LUNG NEOPLASM MALIGNANT
     Dosage: 400 MG/DAILY;PO, 400 MG/DAILY;PO, 400 MG/DAILY;PO
     Route: 048
     Dates: start: 20090824
  4. GEMCITABINE [Suspect]
     Indication: LUNG NEOPLASM MALIGNANT
     Dosage: 2380 MG/1X;IV, 1850 MG/1X;IV, 1850 MG/1X;IV, 1850  MG/1X;IV
     Route: 042
     Dates: start: 20090701, end: 20090701
  5. GEMCITABINE [Suspect]
     Indication: LUNG NEOPLASM MALIGNANT
     Dosage: 2380 MG/1X;IV, 1850 MG/1X;IV, 1850 MG/1X;IV, 1850  MG/1X;IV
     Route: 042
     Dates: start: 20090708, end: 20090708
  6. GEMCITABINE [Suspect]
     Indication: LUNG NEOPLASM MALIGNANT
     Dosage: 2380 MG/1X;IV, 1850 MG/1X;IV, 1850 MG/1X;IV, 1850  MG/1X;IV
     Route: 042
     Dates: start: 20090722, end: 20090722
  7. GEMCITABINE [Suspect]
     Indication: LUNG NEOPLASM MALIGNANT
     Dosage: 2380 MG/1X;IV, 1850 MG/1X;IV, 1850 MG/1X;IV, 1850  MG/1X;IV
     Route: 042
     Dates: start: 20090826
  8. CISPLATIN [Suspect]
     Indication: LUNG NEOPLASM MALIGNANT
     Dosage: 143 MG/1X;IV, 139 MG/1X;IV
     Route: 042
     Dates: start: 20090701, end: 20090701
  9. CISPLATIN [Suspect]
     Indication: LUNG NEOPLASM MALIGNANT
     Dosage: 143 MG/1X;IV, 139 MG/1X;IV
     Route: 042
     Dates: start: 20090722, end: 20090722
  10. ACETAMINOPHEN AND CODEINE PHOSPHATE [Concomitant]
  11. ALPRAZOLAM [Concomitant]
  12. APREPITANT [Concomitant]
  13. METHYLPREDNISOLONE [Concomitant]
  14. METOCLOPRAMIDE HYDROCHLORIDE [Concomitant]
  15. ONDANSETRON [Concomitant]
  16. TINZAPARIN SODIUM [Concomitant]

REACTIONS (18)
  - ABDOMINAL PAIN [None]
  - ANAEMIA [None]
  - CONSTIPATION [None]
  - DECREASED APPETITE [None]
  - DEEP VEIN THROMBOSIS [None]
  - GENERAL PHYSICAL HEALTH DETERIORATION [None]
  - HYPERMAGNESAEMIA [None]
  - HYPOCALCAEMIA [None]
  - HYPOGLYCAEMIA [None]
  - HYPOKALAEMIA [None]
  - HYPONATRAEMIA [None]
  - HYPOPHOSPHATAEMIA [None]
  - LEUKOPENIA [None]
  - NAUSEA [None]
  - NEUTROPENIA [None]
  - THROMBOCYTOPENIA [None]
  - VOMITING [None]
  - WEIGHT DECREASED [None]
